FAERS Safety Report 9345204 (Version 1)
Quarter: 2013Q2

REPORT INFORMATION
  Report Type: Spontaneous
  Country: US (occurrence: US)
  Receive Date: 20130612
  Receipt Date: 20130612
  Transmission Date: 20140414
  Serious: No
  Sender: FDA-Public Use
  Company Number: US-009507513-1305USA017883

PATIENT
  Age: 81 Year
  Sex: Male

DRUGS (7)
  1. AZASITE [Suspect]
     Indication: EYE INFECTION
     Dosage: 1 DF, QPM
     Route: 031
     Dates: start: 20130510
  2. AZASITE [Suspect]
     Dosage: 1 DF, QD
     Route: 031
     Dates: start: 20130505, end: 20130509
  3. AZASITE [Suspect]
     Dosage: 1 DF, BID
     Route: 031
     Dates: start: 20130503, end: 20130504
  4. XARELTO [Concomitant]
  5. POTASSIUM (UNSPECIFIED) [Concomitant]
  6. BUMEX [Concomitant]
  7. LEVOTHYROXINE SODIUM [Concomitant]
     Route: 048

REACTIONS (3)
  - Eye burns [Recovering/Resolving]
  - Off label use [Unknown]
  - Incorrect drug administration duration [Unknown]
